FAERS Safety Report 13881321 (Version 1)
Quarter: 2017Q3

REPORT INFORMATION
  Report Type: Spontaneous
  Country: US (occurrence: US)
  Receive Date: 20170818
  Receipt Date: 20170818
  Transmission Date: 20171127
  Serious: No
  Sender: FDA-Public Use
  Company Number: US-PFIZER INC-2017357276

PATIENT
  Age: 62 Year
  Sex: Female
  Weight: 72.57 kg

DRUGS (1)
  1. LATANOPROST. [Suspect]
     Active Substance: LATANOPROST
     Indication: GLAUCOMA
     Dosage: 2 DROPS, ONCE DAILY (ONE DROP EACH EYE)

REACTIONS (3)
  - Therapeutic response unexpected [Unknown]
  - Eyelash thickening [Unknown]
  - Growth of eyelashes [Unknown]
